FAERS Safety Report 8762196 (Version 1)
Quarter: 2012Q4

REPORT INFORMATION
  Report Type: 
  Country: CH (occurrence: CH)
  Receive Date: 20120829
  Receipt Date: 20120829
  Transmission Date: 20130627
  Serious: Yes (Other)
  Sender: FDA-Public Use
  Company Number: CH-PFIZER INC-2012206901

PATIENT
  Age: 74 Year
  Sex: Male

DRUGS (18)
  1. VFEND [Suspect]
     Indication: INTERVERTEBRAL DISCITIS
     Dosage: 240 mg, 2x/day
     Route: 040
     Dates: start: 20120305, end: 20120313
  2. VFEND [Suspect]
     Indication: ASPERGILLOSIS
  3. VFEND [Suspect]
     Indication: INTERVERTEBRAL DISCITIS
     Dosage: 200 mg, 2x/day
     Route: 048
     Dates: start: 20120313, end: 20120316
  4. VFEND [Suspect]
     Indication: ASPERGILLOSIS
     Dosage: 100 mg, 2x/day
     Route: 048
     Dates: start: 20120318, end: 20120320
  5. VFEND [Suspect]
     Dosage: 50 mg, 2x/day
     Route: 048
     Dates: start: 20120320, end: 20120323
  6. VFEND [Suspect]
     Dosage: 150 mg, 1x/day
     Route: 048
     Dates: start: 20120323, end: 20120403
  7. VFEND [Suspect]
     Dosage: 100 mg, 2x/day
     Route: 048
     Dates: start: 20120403, end: 20120413
  8. VFEND [Suspect]
     Dosage: 250 mg, 1x/day
     Route: 048
     Dates: start: 20120413, end: 20120423
  9. VFEND [Suspect]
     Dosage: 200 mg, 2x/day
     Route: 048
     Dates: start: 20120423, end: 20120509
  10. CLEXANE [Concomitant]
     Dosage: 40 mg, 1x/day
     Route: 058
     Dates: start: 20120301, end: 20120501
  11. CEFTRIAXONE [Concomitant]
     Indication: PERIRECTAL ABSCESS
     Dosage: 2 g, 1x/day
     Route: 040
     Dates: start: 20120330, end: 20120420
  12. FLAGYL ^AVENTIS^ [Concomitant]
     Indication: PERIRECTAL ABSCESS
     Dosage: 500 mg, 3x/day
     Route: 048
     Dates: start: 20120330, end: 20120420
  13. DUROGESIC [Concomitant]
     Dosage: 37.5 DF 1 per 72 hours
     Route: 061
     Dates: start: 20120321
  14. CIPRALEX [Concomitant]
     Dosage: 10 mg, 1x/day
     Dates: start: 20120221
  15. NEXIUM [Concomitant]
     Dosage: 40 mg, 1x/day
     Route: 048
     Dates: start: 20120210
  16. DAFALGAN [Concomitant]
     Dosage: 1 g, as needed
     Route: 048
     Dates: start: 20120303
  17. LAXOBERON [Concomitant]
     Dosage: 10 Gtt, 1x/day
     Route: 048
     Dates: start: 20120321
  18. VI-DE 3 [Concomitant]
     Dosage: 800 IU, 1x/day
     Route: 048
     Dates: start: 20120322

REACTIONS (2)
  - Drug level increased [Recovered/Resolved]
  - Drug level below therapeutic [Not Recovered/Not Resolved]
